FAERS Safety Report 13060329 (Version 1)
Quarter: 2016Q4

REPORT INFORMATION
  Report Type: Report from Study
  Country: US (occurrence: US)
  Receive Date: 20161223
  Receipt Date: 20161223
  Transmission Date: 20170207
  Serious: Yes (Hospitalization, Other)
  Sender: FDA-Public Use
  Company Number: US-AMPHASTAR PHARMACEUTICALS, INC.-1061259

PATIENT
  Age: 29 Year
  Sex: Female
  Weight: 63.3 kg

DRUGS (1)
  1. DEPO-PROVERA [Suspect]
     Active Substance: MEDROXYPROGESTERONE ACETATE
     Indication: INJECTABLE CONTRACEPTION
     Route: 030
     Dates: start: 20150818, end: 20150818

REACTIONS (2)
  - Self-injurious ideation [None]
  - Major depression [Recovered/Resolved]

NARRATIVE: CASE EVENT DATE: 20151213
